FAERS Safety Report 9349681 (Version 1)
Quarter: 2013Q2

REPORT INFORMATION
  Report Type: Spontaneous
  Country: DE (occurrence: DE)
  Receive Date: 20130614
  Receipt Date: 20130614
  Transmission Date: 20140414
  Serious: Yes (Other)
  Sender: FDA-Public Use
  Company Number: DE-ROCHE-1236996

PATIENT
  Age: 58 Year
  Sex: Male

DRUGS (3)
  1. AVASTIN [Suspect]
     Indication: METASTATIC BRONCHIAL CARCINOMA
     Route: 065
  2. CARBOPLATIN [Concomitant]
     Indication: METASTATIC BRONCHIAL CARCINOMA
  3. DOCETAXEL [Concomitant]
     Indication: METASTATIC BRONCHIAL CARCINOMA

REACTIONS (1)
  - Blindness [Unknown]
